FAERS Safety Report 5902095-2 (Version None)
Quarter: 2008Q3

REPORT INFORMATION
  Report Type: 
  Country: None (occurrence: None)
  Receive Date: 20080929
  Receipt Date: 20080917
  Transmission Date: 20090109
  Serious: Yes (Life-Threatening, Hospitalization)
  Sender: FDA-Public Use
  Company Number: DE-PFIZER INC-2008064724

PATIENT
  Sex: Female

DRUGS (3)
  1. SU-011,248 [Suspect]
     Indication: OVARIAN CANCER
     Route: 048
     Dates: start: 20080531
  2. PREDNISOLON [Concomitant]
     Dosage: DAILY DOSE:20MG
     Route: 048
     Dates: start: 20080701
  3. DICLOFENAC [Concomitant]
     Dosage: DAILY DOSE:100MG
     Route: 048
     Dates: start: 20080701

REACTIONS (3)
  - INTESTINAL PERFORATION [None]
  - SUBILEUS [None]
  - THROMBOSIS [None]
